FAERS Safety Report 8180630-4 (Version None)
Quarter: 2012Q1

REPORT INFORMATION
  Report Type: 
  Country: None (occurrence: None)
  Receive Date: 20120302
  Receipt Date: 20120220
  Transmission Date: 20120608
  Serious: Yes (Other)
  Sender: FDA-Public Use
  Company Number: JP-PFIZER INC-2011311236

PATIENT
  Age: 50 Year
  Sex: Male
  Weight: 79.1 kg

DRUGS (18)
  1. DIART [Concomitant]
  2. HEPARIN SODIUM [Concomitant]
  3. WARFARIN [Concomitant]
  4. ALFAROL [Concomitant]
  5. LASIX [Suspect]
     Indication: NEPHROTIC SYNDROME
     Dosage: 20 MG, 2X/DAY
     Route: 048
     Dates: end: 20110608
  6. ALENDRONATE SODIUM [Suspect]
     Indication: PROPHYLAXIS
     Dosage: 35 MG, WEEKLY(EVERY SATURDAY)
     Route: 048
     Dates: start: 20110716, end: 20110727
  7. LIPITOR [Suspect]
     Indication: NEPHROTIC SYNDROME
  8. LASIX [Suspect]
     Indication: PROPHYLAXIS
  9. LIPITOR [Suspect]
     Indication: PROPHYLAXIS
     Dosage: 10 MG, UID/QD
     Route: 048
     Dates: start: 20110520, end: 20110606
  10. LANSOPRAZOLE [Suspect]
     Indication: PROPHYLAXIS
     Dosage: 15 MG, UID/QD
     Route: 048
     Dates: start: 20110521, end: 20110606
  11. TRICHLORMETHIAZIDE [Suspect]
     Indication: NEPHROTIC SYNDROME
     Dosage: 2 MG, UID/QD
     Route: 048
     Dates: end: 20110606
  12. LEVOTHYROXINE SODIUM [Concomitant]
     Route: 048
  13. EPADEL [Concomitant]
  14. TRICHLORMETHIAZIDE [Suspect]
     Indication: PROPHYLAXIS
  15. SILECE [Concomitant]
  16. COTRIM [Suspect]
     Indication: PROPHYLAXIS
     Dosage: 2 DF, UID/QD
     Route: 048
     Dates: start: 20110627, end: 20110727
  17. RABEPRAZOLE SODIUM [Concomitant]
  18. PREDNISOLONE [Concomitant]

REACTIONS (2)
  - AGRANULOCYTOSIS [None]
  - THROMBOCYTOPENIA [None]
